FAERS Safety Report 26053289 (Version 1)
Quarter: 2025Q4

REPORT INFORMATION
  Report Type: Spontaneous
  Country: US (occurrence: None)
  Receive Date: 20251115
  Receipt Date: 20251115
  Transmission Date: 20260117
  Serious: Yes (Hospitalization)
  Sender: FDA-CTU
  Company Number: None

PATIENT
  Age: 65 Year
  Sex: Male
  Weight: 122.9 kg

DRUGS (2)
  1. IPILIMUMAB [Suspect]
     Active Substance: IPILIMUMAB
     Dates: end: 20251006
  2. NIVOLUMAB [Suspect]
     Active Substance: NIVOLUMAB
     Dosage: OTHER FREQUENCY : PATIENT RECEIVED FIRST CYCLE OF TREATMENT PRIOR TO GOING ON STUDY PATIENT^S FIRST CYCLE WAS 8/27/25 ;?
     Dates: end: 20251006

REACTIONS (13)
  - Pyrexia [None]
  - Oxygen saturation decreased [None]
  - Dyspnoea [None]
  - Atelectasis [None]
  - Pneumonia [None]
  - Blood creatinine increased [None]
  - Adverse drug reaction [None]
  - Diarrhoea [None]
  - Dehydration [None]
  - Faeces discoloured [None]
  - Hypotension [None]
  - Escherichia test positive [None]
  - Lung opacity [None]

NARRATIVE: CASE EVENT DATE: 20251024
